FAERS Safety Report 13735723 (Version 2)
Quarter: 2017Q3

REPORT INFORMATION
  Report Type: Report from Study
  Country: US (occurrence: US)
  Receive Date: 20170710
  Receipt Date: 20170907
  Transmission Date: 20171127
  Serious: No
  Sender: FDA-Public Use
  Company Number: PHEH2017US020849

PATIENT
  Sex: Female
  Weight: 110.66 kg

DRUGS (5)
  1. CALCIPOTRIENE. [Concomitant]
     Active Substance: CALCIPOTRIENE
     Indication: PRODUCT USED FOR UNKNOWN INDICATION
     Dosage: UNK UNK, BID
     Route: 065
  2. METHYLPREDNISOLONE. [Concomitant]
     Active Substance: METHYLPREDNISOLONE
     Indication: PRODUCT USED FOR UNKNOWN INDICATION
     Dosage: 4 MG, UNK
     Route: 065
  3. COSENTYX [Suspect]
     Active Substance: SECUKINUMAB
     Indication: PRODUCT USED FOR UNKNOWN INDICATION
     Dosage: 300 MG, QW (300 MG IN TWO 150 INJECTIONS)
     Route: 065
  4. CLOBETASOL [Concomitant]
     Active Substance: CLOBETASOL
     Indication: PRODUCT USED FOR UNKNOWN INDICATION
     Dosage: 120 G, BID
     Route: 065
  5. FLUOCINONIDE. [Concomitant]
     Active Substance: FLUOCINONIDE
     Indication: PRODUCT USED FOR UNKNOWN INDICATION
     Dosage: 90 G, BID
     Route: 065

REACTIONS (12)
  - Swelling face [Unknown]
  - Pruritus [Unknown]
  - Drug hypersensitivity [Unknown]
  - Insomnia [Unknown]
  - Feeling abnormal [Unknown]
  - Skin tightness [Unknown]
  - Skin burning sensation [Unknown]
  - Erythema [Unknown]
  - Discomfort [Unknown]
  - Psoriasis [Unknown]
  - Skin lesion [Unknown]
  - Blister [Recovered/Resolved]
